FAERS Safety Report 4305753-9 (Version None)
Quarter: 2004Q1

REPORT INFORMATION
  Report Type: 
  Country: None (occurrence: None)
  Receive Date: 20040225
  Receipt Date: 20040217
  Transmission Date: 20041129
  Serious: Yes (Life-Threatening, Hospitalization)
  Sender: FDA-Public Use
  Company Number: HQWYE434102SEP03

PATIENT
  Age: 68 Year
  Sex: Male

DRUGS (9)
  1. AMIODARONE HCL [Suspect]
     Indication: HYPERTROPHIC CARDIOMYOPATHY
     Dosage: 300 MG 1X PER 1 DAY, ORAL
     Route: 048
     Dates: start: 20000619, end: 20030819
  2. LIPITOR [Concomitant]
  3. TORSEMIDE [Concomitant]
  4. PENFILL R (INSULIN HUMAN) [Concomitant]
  5. PENFILL N (INSULIN HUMAN INJECTION, ISOPHANE) [Concomitant]
  6. ACECOL (TEMOCAPRIL HYDROCHLORIDE) [Concomitant]
  7. URINORM (BENZBROMARONE) [Concomitant]
  8. SLOW-K [Concomitant]
  9. WARFARIN POTASSIUM (WARFARIN POTASSIUM) [Concomitant]

REACTIONS (1)
  - PNEUMONIA [None]
